FAERS Safety Report 7594129-7 (Version None)
Quarter: 2011Q3

REPORT INFORMATION
  Report Type: 
  Country: None (occurrence: None)
  Receive Date: 20110706
  Receipt Date: 20110629
  Transmission Date: 20111222
  Serious: Yes (Other)
  Sender: FDA-Public Use
  Company Number: JP-PFIZER INC-2011142103

PATIENT
  Age: 60 Year
  Sex: Male

DRUGS (2)
  1. ZOSYN [Suspect]
     Dosage: UNK
     Route: 041
     Dates: start: 20100925
  2. LEVOFLOXACIN [Suspect]
     Dosage: UNK
     Route: 048
     Dates: start: 20100925

REACTIONS (1)
  - EOSINOPHILIC PNEUMONIA [None]
